FAERS Safety Report 21345814 (Version 1)
Quarter: 2022Q3

REPORT INFORMATION
  Report Type: Spontaneous
  Country: DE (occurrence: None)
  Receive Date: 20220916
  Receipt Date: 20220916
  Transmission Date: 20221027
  Serious: Yes (Other)
  Sender: FDA-Public Use
  Company Number: 2022A316022

PATIENT
  Sex: Female

DRUGS (9)
  1. TAGRISSO [Suspect]
     Active Substance: OSIMERTINIB
     Indication: Non-small cell lung cancer
     Dosage: INITIALLY 40 MG FOR 7
     Route: 048
     Dates: start: 20191118
  2. TAGRISSO [Suspect]
     Active Substance: OSIMERTINIB
     Indication: Non-small cell lung cancer
     Dosage: INITIALLY 40 MG FOR 7
     Route: 048
     Dates: start: 20191118
  3. CARBOPLATIN [Concomitant]
     Active Substance: CARBOPLATIN
     Route: 065
  4. VINORELBINE [Concomitant]
     Active Substance: VINORELBINE TARTRATE
     Route: 065
  5. NIVOLUMAB [Concomitant]
     Active Substance: NIVOLUMAB
     Dosage: 3 MG/KG
     Route: 065
  6. VACCINATION OF INFLUENZA [Concomitant]
     Route: 065
  7. AFATINIB [Concomitant]
     Active Substance: AFATINIB
     Dosage: 30 MG / DAY
     Route: 065
  8. PEMETREXED [Concomitant]
     Active Substance: PEMETREXED
     Dosage: 400MG / M? D1, QD29
     Route: 065
  9. ERLOTINIB [Concomitant]
     Active Substance: ERLOTINIB
     Dosage: 100MG / 75MG
     Route: 065
     Dates: start: 20220614

REACTIONS (14)
  - Uterine leiomyoma [Unknown]
  - Splenic lesion [Unknown]
  - Metastases to bone [Unknown]
  - Brain oedema [Unknown]
  - Computerised tomogram abnormal [Unknown]
  - Tumour compression [Unknown]
  - Metastases to central nervous system [Unknown]
  - Spinal pain [Unknown]
  - Splenic cyst [Unknown]
  - Polyneuropathy [Unknown]
  - Metastases to liver [Unknown]
  - Spondylolisthesis [Unknown]
  - Dermatitis acneiform [Unknown]
  - Rash [Unknown]

NARRATIVE: CASE EVENT DATE: 20191101
